FAERS Safety Report 10679200 (Version 1)
Quarter: 2014Q4

REPORT INFORMATION
  Report Type: Spontaneous
  Country: DE (occurrence: DE)
  Receive Date: 20141229
  Receipt Date: 20141229
  Transmission Date: 20150529
  Serious: Yes (Life-Threatening, Hospitalization)
  Sender: FDA-Public Use
  Company Number: DE-TEVA-530798GER

PATIENT
  Sex: Female

DRUGS (5)
  1. QUININE [Suspect]
     Active Substance: QUININE
     Indication: CEREBRAL MALARIA
     Route: 042
  2. QUININE [Suspect]
     Active Substance: QUININE
     Indication: PLASMODIUM FALCIPARUM INFECTION
     Dosage: 16.4 MG/KG LOADING DOSE
     Route: 042
  3. ARTESUNATE [Suspect]
     Active Substance: ARTESUNATE
     Indication: PLASMODIUM FALCIPARUM INFECTION
     Dosage: 5 DOSES OF 200 MG
     Route: 054
  4. CLINDAMYCIN [Suspect]
     Active Substance: CLINDAMYCIN\CLINDAMYCIN PHOSPHATE
     Indication: PLASMODIUM FALCIPARUM INFECTION
     Route: 048
  5. QUININE [Suspect]
     Active Substance: QUININE
     Route: 048

REACTIONS (3)
  - Electrocardiogram QT interval [Unknown]
  - Haemolysis [Unknown]
  - Acute kidney injury [Recovered/Resolved]
